FAERS Safety Report 8277115-3 (Version None)
Quarter: 2012Q2

REPORT INFORMATION
  Report Type: 
  Country: None (occurrence: None)
  Receive Date: 20120412
  Receipt Date: 20120327
  Transmission Date: 20120825
  Serious: Yes (Other)
  Sender: FDA-Public Use
  Company Number: US-ROCHE-1053839

PATIENT
  Sex: Male

DRUGS (2)
  1. RIBAVIRIN [Suspect]
     Indication: HEPATITIS C
     Dosage: INDICATION: HEPATITIS C INFECTION, GENOTYPE 1
     Route: 048
     Dates: start: 20111214
  2. PEGASYS [Suspect]
     Indication: HEPATITIS C
     Route: 058
     Dates: start: 20111214

REACTIONS (7)
  - DRUG DOSE OMISSION [None]
  - MENTAL IMPAIRMENT [None]
  - MIGRAINE [None]
  - FEELING ABNORMAL [None]
  - VISUAL IMPAIRMENT [None]
  - PRODUCT QUALITY ISSUE [None]
  - POOR QUALITY DRUG ADMINISTERED [None]
